FAERS Safety Report 25677589 (Version 2)
Quarter: 2025Q3

REPORT INFORMATION
  Report Type: Report from Study
  Country: EU (occurrence: EU)
  Receive Date: 20250813
  Receipt Date: 20250818
  Transmission Date: 20251021
  Serious: Yes (Other)
  Sender: MYLAN
  Company Number: EU-PFIZER INC-PV202300157534

PATIENT
  Age: 47 Year
  Sex: Female
  Weight: 68 kg

DRUGS (40)
  1. METHOTREXATE [Suspect]
     Active Substance: METHOTREXATE
     Indication: Rheumatoid arthritis
  2. METHOTREXATE [Suspect]
     Active Substance: METHOTREXATE
     Route: 065
  3. METHOTREXATE [Suspect]
     Active Substance: METHOTREXATE
     Route: 065
  4. METHOTREXATE [Suspect]
     Active Substance: METHOTREXATE
  5. INFLIXIMAB [Suspect]
     Active Substance: INFLIXIMAB
     Indication: Rheumatoid arthritis
     Dates: start: 20230619
  6. INFLIXIMAB [Suspect]
     Active Substance: INFLIXIMAB
     Dates: start: 20230619
  7. INFLIXIMAB [Suspect]
     Active Substance: INFLIXIMAB
     Route: 058
     Dates: start: 20230619
  8. INFLIXIMAB [Suspect]
     Active Substance: INFLIXIMAB
     Route: 058
     Dates: start: 20230619
  9. INFLIXIMAB [Suspect]
     Active Substance: INFLIXIMAB
     Dates: start: 20230911
  10. INFLIXIMAB [Suspect]
     Active Substance: INFLIXIMAB
     Dates: start: 20230911
  11. INFLIXIMAB [Suspect]
     Active Substance: INFLIXIMAB
     Route: 065
     Dates: start: 20230911
  12. INFLIXIMAB [Suspect]
     Active Substance: INFLIXIMAB
     Route: 065
     Dates: start: 20230911
  13. INFLIXIMAB [Suspect]
     Active Substance: INFLIXIMAB
     Dosage: 120 MILLIGRAM, Q2W,  EVERY 2 WEEKS
  14. INFLIXIMAB [Suspect]
     Active Substance: INFLIXIMAB
     Dosage: 120 MILLIGRAM, Q2W,  EVERY 2 WEEKS
     Route: 058
  15. INFLIXIMAB [Suspect]
     Active Substance: INFLIXIMAB
     Dosage: 120 MILLIGRAM, Q2W,  EVERY 2 WEEKS
  16. INFLIXIMAB [Suspect]
     Active Substance: INFLIXIMAB
     Dosage: 120 MILLIGRAM, Q2W,  EVERY 2 WEEKS
     Route: 058
  17. MANIDIPINE HYDROCHLORIDE [Suspect]
     Active Substance: MANIDIPINE HYDROCHLORIDE
     Indication: Hypertension
  18. MANIDIPINE HYDROCHLORIDE [Suspect]
     Active Substance: MANIDIPINE HYDROCHLORIDE
     Route: 065
  19. MANIDIPINE HYDROCHLORIDE [Suspect]
     Active Substance: MANIDIPINE HYDROCHLORIDE
     Route: 065
  20. MANIDIPINE HYDROCHLORIDE [Suspect]
     Active Substance: MANIDIPINE HYDROCHLORIDE
  21. Coved [Concomitant]
     Dosage: 1 DOSAGE FORM, QW, WEEKLY (1 DOSAGE FORM, EVERY 1 WEEK)
  22. Coved [Concomitant]
     Dosage: 1 DOSAGE FORM, QW, WEEKLY (1 DOSAGE FORM, EVERY 1 WEEK)
     Route: 065
  23. Coved [Concomitant]
     Dosage: 1 DOSAGE FORM, QW, WEEKLY (1 DOSAGE FORM, EVERY 1 WEEK)
     Route: 065
  24. Coved [Concomitant]
     Dosage: 1 DOSAGE FORM, QW, WEEKLY (1 DOSAGE FORM, EVERY 1 WEEK)
  25. LEVOTHYROXINE [Concomitant]
     Active Substance: LEVOTHYROXINE
     Dosage: 25 MILLIGRAM, QD, 25 MG, DAILY
  26. LEVOTHYROXINE [Concomitant]
     Active Substance: LEVOTHYROXINE
     Dosage: 25 MILLIGRAM, QD, 25 MG, DAILY
     Route: 065
  27. LEVOTHYROXINE [Concomitant]
     Active Substance: LEVOTHYROXINE
     Dosage: 25 MILLIGRAM, QD, 25 MG, DAILY
     Route: 065
  28. LEVOTHYROXINE [Concomitant]
     Active Substance: LEVOTHYROXINE
     Dosage: 25 MILLIGRAM, QD, 25 MG, DAILY
  29. ROSUVASTATIN [Concomitant]
     Active Substance: ROSUVASTATIN
     Dosage: 5 MILLIGRAM, QD, (5 MG, DAILY (5 MG, EVERY 1 DAY))
  30. ROSUVASTATIN [Concomitant]
     Active Substance: ROSUVASTATIN
     Dosage: 5 MILLIGRAM, QD, (5 MG, DAILY (5 MG, EVERY 1 DAY))
     Route: 065
  31. ROSUVASTATIN [Concomitant]
     Active Substance: ROSUVASTATIN
     Dosage: 5 MILLIGRAM, QD, (5 MG, DAILY (5 MG, EVERY 1 DAY))
     Route: 065
  32. ROSUVASTATIN [Concomitant]
     Active Substance: ROSUVASTATIN
     Dosage: 5 MILLIGRAM, QD, (5 MG, DAILY (5 MG, EVERY 1 DAY))
  33. DIMETHINDENE [Concomitant]
     Active Substance: DIMETHINDENE
     Dosage: 5 MILLIGRAM, QD (5 MG, DAILY (5 MG, EVERY 1 DAY))
  34. DIMETHINDENE [Concomitant]
     Active Substance: DIMETHINDENE
     Dosage: 5 MILLIGRAM, QD (5 MG, DAILY (5 MG, EVERY 1 DAY))
     Route: 065
  35. DIMETHINDENE [Concomitant]
     Active Substance: DIMETHINDENE
     Dosage: 5 MILLIGRAM, QD (5 MG, DAILY (5 MG, EVERY 1 DAY))
     Route: 065
  36. DIMETHINDENE [Concomitant]
     Active Substance: DIMETHINDENE
     Dosage: 5 MILLIGRAM, QD (5 MG, DAILY (5 MG, EVERY 1 DAY))
  37. PREDNISOLONE [Concomitant]
     Active Substance: PREDNISOLONE
     Dosage: 5 MILLIGRAM, QD, 5 MG, DAILY (5 MG, EVERY 1 DAY)
  38. PREDNISOLONE [Concomitant]
     Active Substance: PREDNISOLONE
     Dosage: 5 MILLIGRAM, QD, 5 MG, DAILY (5 MG, EVERY 1 DAY)
     Route: 065
  39. PREDNISOLONE [Concomitant]
     Active Substance: PREDNISOLONE
     Dosage: 5 MILLIGRAM, QD, 5 MG, DAILY (5 MG, EVERY 1 DAY)
     Route: 065
  40. PREDNISOLONE [Concomitant]
     Active Substance: PREDNISOLONE
     Dosage: 5 MILLIGRAM, QD, 5 MG, DAILY (5 MG, EVERY 1 DAY)

REACTIONS (6)
  - Thrombocytopenia [Not Recovered/Not Resolved]
  - Hepatic enzyme increased [Unknown]
  - Hypotension [Recovered/Resolved]
  - Dizziness [Recovered/Resolved]
  - Intentional product use issue [Unknown]
  - Underdose [Unknown]

NARRATIVE: CASE EVENT DATE: 20230619
